FAERS Safety Report 8219842-X (Version None)
Quarter: 2012Q1

REPORT INFORMATION
  Report Type: 
  Country: None (occurrence: None)
  Receive Date: 20120319
  Receipt Date: 20120315
  Transmission Date: 20120608
  Serious: Yes (Death)
  Sender: FDA-Public Use
  Company Number: SE-ASTRAZENECA-2012SE17942

PATIENT
  Sex: Male
  Weight: 98 kg

DRUGS (3)
  1. SEROQUEL XR [Suspect]
     Route: 048
  2. CISORDINOL [Suspect]
     Route: 065
  3. CLOMIPRAMINE HCL [Concomitant]

REACTIONS (1)
  - DEATH [None]
